FAERS Safety Report 22377827 (Version 1)
Quarter: 2023Q2

REPORT INFORMATION
  Report Type: Report from Study
  Country: US (occurrence: US)
  Receive Date: 20230529
  Receipt Date: 20230529
  Transmission Date: 20230721
  Serious: No
  Sender: FDA-Public Use
  Company Number: US-002147023-NVSC2023US119699

PATIENT
  Sex: Male
  Weight: 120.64 kg

DRUGS (2)
  1. CLOBETASOL [Suspect]
     Active Substance: CLOBETASOL
     Indication: Psoriasis
     Dosage: UNK
     Route: 065
  2. CLOBETASOL [Suspect]
     Active Substance: CLOBETASOL
     Indication: Psoriatic arthropathy

REACTIONS (11)
  - Macule [Unknown]
  - Skin discomfort [Unknown]
  - Ingrown hair [Unknown]
  - Photodermatosis [Unknown]
  - Xerosis [Unknown]
  - Skin exfoliation [Unknown]
  - Skin irritation [Unknown]
  - Rash erythematous [Unknown]
  - Pruritus [Unknown]
  - Pain [Unknown]
  - Drug ineffective [Unknown]
